FAERS Safety Report 17210992 (Version 1)
Quarter: 2019Q4

REPORT INFORMATION
  Report Type: Spontaneous
  Country: GB (occurrence: GB)
  Receive Date: 20191227
  Receipt Date: 20191227
  Transmission Date: 20200122
  Serious: Yes (Other)
  Sender: FDA-Public Use
  Company Number: GB-ROCHE-2492994

PATIENT
  Age: 76 Year
  Sex: Female

DRUGS (1)
  1. ROACTEMRA [Suspect]
     Active Substance: TOCILIZUMAB
     Indication: TEMPORAL ARTERITIS
     Route: 065
     Dates: start: 201801

REACTIONS (5)
  - Pain in jaw [Unknown]
  - Cerebral ischaemia [Unknown]
  - Product use in unapproved indication [Unknown]
  - C-reactive protein increased [Unknown]
  - Off label use [Unknown]
